FAERS Safety Report 10634080 (Version 1)
Quarter: 2014Q4

REPORT INFORMATION
  Report Type: Report from Study
  Country: DE (occurrence: DE)
  Receive Date: 20141205
  Receipt Date: 20141205
  Transmission Date: 20150529
  Serious: Yes (Hospitalization, Other)
  Sender: FDA-Public Use
  Company Number: DE-AMGEN-DEUCT2014093457

PATIENT
  Age: 48 Year
  Sex: Female
  Weight: 68 kg

DRUGS (5)
  1. PANITUMUMAB [Suspect]
     Active Substance: PANITUMUMAB
     Indication: COLON CANCER
     Dosage: 408 UNK, UNK
     Route: 065
     Dates: start: 20141001, end: 20141001
  2. OXALIPLATIN. [Suspect]
     Active Substance: OXALIPLATIN
     Indication: COLON CANCER
     Dosage: 5 MG FOR 5 MINUTES
     Route: 065
     Dates: start: 201009, end: 201104
  3. CALCIUMFOLINAT [Concomitant]
     Active Substance: LEUCOVORIN CALCIUM
     Indication: COLON CANCER
     Dosage: UNK
     Dates: start: 201009, end: 201104
  4. FU [Concomitant]
     Active Substance: FLUOROURACIL
     Indication: COLON CANCER
     Dosage: UNK
     Route: 041
     Dates: start: 201009, end: 201104
  5. IRINOTECAN [Concomitant]
     Active Substance: IRINOTECAN
     Indication: COLON CANCER
     Dosage: UNK

REACTIONS (3)
  - Presyncope [Recovered/Resolved]
  - Hypersensitivity [Recovered/Resolved]
  - Circulatory collapse [Recovered/Resolved]

NARRATIVE: CASE EVENT DATE: 20141001
